FAERS Safety Report 4336780-3 (Version None)
Quarter: 2004Q1

REPORT INFORMATION
  Report Type: 
  Country: None (occurrence: None)
  Receive Date: 20040329
  Receipt Date: 20040109
  Transmission Date: 20041129
  Serious: No
  Sender: FDA-Public Use
  Company Number: USA040156250

PATIENT
  Sex: Male
  Weight: 40 kg

DRUGS (3)
  1. STRATTERA [Suspect]
     Dosage: 60 MG/AT BEDTIME
     Dates: start: 20030201
  2. ZOLOFT [Concomitant]
  3. WELLBUTRIN [Concomitant]

REACTIONS (5)
  - ABNORMAL BEHAVIOUR [None]
  - DECREASED APPETITE [None]
  - DRUG INEFFECTIVE [None]
  - INSOMNIA [None]
  - WEIGHT DECREASED [None]
